FAERS Safety Report 22339386 (Version 2)
Quarter: 2024Q4

REPORT INFORMATION
  Report Type: Report from Study
  Country: US (occurrence: US)
  Receive Date: 20230518
  Receipt Date: 20241022
  Transmission Date: 20250115
  Serious: Yes (Hospitalization, Other)
  Sender: JAZZ
  Company Number: US-JAZZ PHARMACEUTICALS-2022-US-015909

PATIENT
  Age: 31 Year
  Sex: Female

DRUGS (74)
  1. XYWAV [Suspect]
     Active Substance: CALCIUM OXYBATE\MAGNESIUM OXYBATE\POTASSIUM OXYBATE\SODIUM OXYBATE
     Indication: Narcolepsy
     Dosage: 2.5 GRAM, BID
  2. XYWAV [Suspect]
     Active Substance: CALCIUM OXYBATE\MAGNESIUM OXYBATE\POTASSIUM OXYBATE\SODIUM OXYBATE
     Indication: Cataplexy
  3. XYWAV [Suspect]
     Active Substance: CALCIUM OXYBATE\MAGNESIUM OXYBATE\POTASSIUM OXYBATE\SODIUM OXYBATE
     Indication: Somnolence
  4. LORAZEPAM [Suspect]
     Active Substance: LORAZEPAM
     Indication: Seizure
     Dosage: 1 MG/0.5 ML ORAL CONC
     Dates: start: 20230605
  5. LORAZEPAM [Suspect]
     Active Substance: LORAZEPAM
     Dosage: 2 MG/ML
  6. LORAZEPAM [Suspect]
     Active Substance: LORAZEPAM
     Dosage: 2 MG/ML
  7. CIPRO [Suspect]
     Active Substance: CIPROFLOXACIN HYDROCHLORIDE
     Indication: Urinary tract infection
     Dosage: UNK
  8. CIPRO [Suspect]
     Active Substance: CIPROFLOXACIN HYDROCHLORIDE
     Dosage: UNK
  9. DEXMETHYLPHENIDATE [Suspect]
     Active Substance: DEXMETHYLPHENIDATE
     Indication: Product used for unknown indication
     Dosage: 1 CAPSULE, QD
     Route: 048
  10. DEXMETHYLPHENIDATE [Suspect]
     Active Substance: DEXMETHYLPHENIDATE
     Dosage: 1 CAPSULE, QD
     Route: 048
  11. FERROUS BISGLYCINATE [Suspect]
     Active Substance: FERROUS BISGLYCINATE
     Indication: Product used for unknown indication
  12. COMPAZINE [Suspect]
     Active Substance: PROCHLORPERAZINE MALEATE
     Indication: Pain
  13. DIAZEPAM [Concomitant]
     Active Substance: DIAZEPAM
     Indication: Product used for unknown indication
     Dosage: UNK
     Dates: start: 20210729
  14. LYRICA [Concomitant]
     Active Substance: PREGABALIN
     Indication: Product used for unknown indication
     Dosage: UNK
     Dates: start: 20220210
  15. FLUOCINOLONE [Concomitant]
     Active Substance: FLUOCINOLONE
     Indication: Product used for unknown indication
     Dosage: BODY OIL
     Dates: start: 20220312
  16. CONCERTA [Concomitant]
     Active Substance: METHYLPHENIDATE HYDROCHLORIDE
     Indication: Product used for unknown indication
     Dosage: 1 TABLET, QD
     Route: 048
  17. CONCERTA [Concomitant]
     Active Substance: METHYLPHENIDATE HYDROCHLORIDE
     Dosage: 1 TABLET, QD
     Route: 048
  18. VERAPAMIL [Concomitant]
     Active Substance: VERAPAMIL HYDROCHLORIDE
     Indication: Product used for unknown indication
     Dosage: UNK
  19. VERAPAMIL [Concomitant]
     Active Substance: VERAPAMIL HYDROCHLORIDE
     Dosage: UNK
  20. SPIRONOLACTONE [Concomitant]
     Active Substance: SPIRONOLACTONE
     Indication: Product used for unknown indication
     Dosage: 1 TABLET, BID
     Route: 048
  21. SPIRONOLACTONE [Concomitant]
     Active Substance: SPIRONOLACTONE
     Dosage: 1 TABLET, BID
     Route: 048
  22. PREGABALIN [Concomitant]
     Active Substance: PREGABALIN
     Indication: Product used for unknown indication
     Dosage: 25 MG CAPSULE
  23. PREGABALIN [Concomitant]
     Active Substance: PREGABALIN
     Dosage: 150 MG CAPSULE
  24. PREGABALIN [Concomitant]
     Active Substance: PREGABALIN
     Dosage: 25 MG CAPSULE
  25. PREGABALIN [Concomitant]
     Active Substance: PREGABALIN
     Dosage: 150 MG CAPSULE
  26. XTAMPZA ER [Concomitant]
     Active Substance: OXYCODONE
     Indication: Pain
     Dosage: 1 TABLET, BID, 5 MG
     Route: 048
  27. XTAMPZA ER [Concomitant]
     Active Substance: OXYCODONE
     Dosage: 9 MG CAPSULE, 1 CAPSULE BID
     Route: 048
  28. XTAMPZA ER [Concomitant]
     Active Substance: OXYCODONE
     Dosage: 1 TABLET, BID, 5 MG
     Route: 048
  29. XTAMPZA ER [Concomitant]
     Active Substance: OXYCODONE
     Dosage: 9 MG CAPSULE, 1 CAPSULE BID
     Route: 048
  30. MONTELUKAST [Concomitant]
     Active Substance: MONTELUKAST
     Indication: Product used for unknown indication
     Dosage: UNK
  31. MONTELUKAST [Concomitant]
     Active Substance: MONTELUKAST
     Dosage: UNK
  32. METHYLPHENIDATE [Concomitant]
     Active Substance: METHYLPHENIDATE
     Indication: Product used for unknown indication
     Dosage: 7.5 MILLIGRAM, QID
  33. METHYLPHENIDATE [Concomitant]
     Active Substance: METHYLPHENIDATE
     Dosage: 10 MG, 1 TABLET, BID
  34. METHYLPHENIDATE [Concomitant]
     Active Substance: METHYLPHENIDATE
     Dosage: 5 MILLIGRAM, TABLET
     Dates: start: 20230816
  35. METHYLPHENIDATE [Concomitant]
     Active Substance: METHYLPHENIDATE
     Dosage: 2.5 GRAM, BID
  36. LEVOTHYROXINE [Concomitant]
     Active Substance: LEVOTHYROXINE
     Indication: Product used for unknown indication
     Dosage: 1 TABLET, EVRY DAY
     Route: 048
  37. LEVOTHYROXINE [Concomitant]
     Active Substance: LEVOTHYROXINE
     Dosage: 1 TABLET, EVRY DAY
     Route: 048
  38. LEVOCETIRIZINE HYDROCHLORIDE [Concomitant]
     Active Substance: LEVOCETIRIZINE HYDROCHLORIDE
     Indication: Product used for unknown indication
     Dosage: UNK
  39. LEVOCETIRIZINE HYDROCHLORIDE [Concomitant]
     Active Substance: LEVOCETIRIZINE HYDROCHLORIDE
     Dosage: UNK
  40. LARISSIA [Concomitant]
     Active Substance: ETHINYL ESTRADIOL\LEVONORGESTREL
     Indication: Product used for unknown indication
     Dosage: 0.1 MG- 20 MCG TABLET
  41. LARISSIA [Concomitant]
     Active Substance: ETHINYL ESTRADIOL\LEVONORGESTREL
     Dosage: 0.1 MG- 20 MCG TABLET
  42. LACOSAMIDE [Concomitant]
     Active Substance: LACOSAMIDE
     Indication: Product used for unknown indication
     Dosage: 100 MG, 1 TABLET, BID
     Route: 048
  43. LACOSAMIDE [Concomitant]
     Active Substance: LACOSAMIDE
     Dosage: 150 MG, 1 TABLET, BID
     Route: 048
  44. LACOSAMIDE [Concomitant]
     Active Substance: LACOSAMIDE
     Dosage: 100 MG, 1 TABLET, BID
     Route: 048
  45. LACOSAMIDE [Concomitant]
     Active Substance: LACOSAMIDE
     Dosage: 150 MG, 1 TABLET, BID
     Route: 048
  46. EPIPEN [Concomitant]
     Active Substance: EPINEPHRINE
     Indication: Product used for unknown indication
     Dosage: 0.3MG/ 0.3 ML INJECTION
  47. EPIPEN [Concomitant]
     Active Substance: EPINEPHRINE
     Dosage: 0.3MG/ 0.3 ML INJECTION
  48. CLOBETASOL [Concomitant]
     Active Substance: CLOBETASOL
     Indication: Product used for unknown indication
     Dosage: UNK
     Dates: start: 20230111
  49. ALBUTEROL SULFATE [Concomitant]
     Active Substance: ALBUTEROL SULFATE
     Indication: Product used for unknown indication
     Dosage: UNK
  50. ALBUTEROL SULFATE [Concomitant]
     Active Substance: ALBUTEROL SULFATE
     Dosage: UNK
  51. ADVAIR HFA [Concomitant]
     Active Substance: FLUTICASONE PROPIONATE\SALMETEROL XINAFOATE
     Dosage: UNK
  52. ADVAIR HFA [Concomitant]
     Active Substance: FLUTICASONE PROPIONATE\SALMETEROL XINAFOATE
     Dosage: UNK
  53. HYDROMORPHONE [Concomitant]
     Active Substance: HYDROMORPHONE
     Indication: Pain
     Dosage: 1 TABLET AS NEEDED
     Route: 048
     Dates: start: 20230315
  54. SRONYX [Concomitant]
     Active Substance: ETHINYL ESTRADIOL\LEVONORGESTREL
     Indication: Product used for unknown indication
     Dosage: 1 TABLET
     Route: 048
  55. SRONYX [Concomitant]
     Active Substance: ETHINYL ESTRADIOL\LEVONORGESTREL
     Dosage: 1 TABLET
     Route: 048
  56. CETIRIZINE HCL [Concomitant]
     Active Substance: CETIRIZINE HYDROCHLORIDE
     Indication: Product used for unknown indication
     Dosage: UNK
     Dates: start: 20220501
  57. KETOTIFEN FUMARATE [Concomitant]
     Active Substance: KETOTIFEN FUMARATE
     Indication: Product used for unknown indication
     Dosage: UNK
     Dates: start: 20230511
  58. CROMOLYN SODIUM [Concomitant]
     Active Substance: CROMOLYN SODIUM
     Indication: Product used for unknown indication
     Dosage: 20 MG/ 2 ML
     Dates: start: 20230518
  59. CROMOLYN SODIUM [Concomitant]
     Active Substance: CROMOLYN SODIUM
     Dosage: 100 MG/5 ML
  60. CROMOLYN SODIUM [Concomitant]
     Active Substance: CROMOLYN SODIUM
     Dosage: 100 MG/5 ML
  61. SKYRIZI [Concomitant]
     Active Substance: RISANKIZUMAB-RZAA
     Indication: Product used for unknown indication
     Dosage: UNK
     Dates: start: 20230825
  62. VIMPAT [Concomitant]
     Active Substance: LACOSAMIDE
     Indication: Product used for unknown indication
     Dosage: 100 MILLIGRAM TABLET
     Dates: start: 20230531
  63. VIMPAT [Concomitant]
     Active Substance: LACOSAMIDE
     Dosage: 150 MILLIGRAM TABLET
     Dates: start: 20230830
  64. XOLAIR [Concomitant]
     Active Substance: OMALIZUMAB
     Indication: Product used for unknown indication
     Dosage: UNK
  65. XOLAIR [Concomitant]
     Active Substance: OMALIZUMAB
     Dosage: UNK
  66. FLONASE [Concomitant]
     Active Substance: FLUTICASONE PROPIONATE
     Indication: Product used for unknown indication
     Dosage: UNK
  67. FLONASE [Concomitant]
     Active Substance: FLUTICASONE PROPIONATE
     Dosage: UNK
  68. NALOXONE [Concomitant]
     Active Substance: NALOXONE
     Indication: Product used for unknown indication
     Dosage: UNK
  69. NALOXONE [Concomitant]
     Active Substance: NALOXONE
     Dosage: UNK
  70. OLOPATADINE [Concomitant]
     Active Substance: OLOPATADINE
     Indication: Product used for unknown indication
     Dosage: 2 SPARYS, BID
  71. OLOPATADINE [Concomitant]
     Active Substance: OLOPATADINE
     Dosage: 2 SPARYS, BID
  72. KETOCONAZOLE [Concomitant]
     Active Substance: KETOCONAZOLE
     Indication: Product used for unknown indication
     Dosage: UNK
     Dates: start: 20230710
  73. OXYCODONE HYDROCHLORIDE [Concomitant]
     Active Substance: OXYCODONE HYDROCHLORIDE
     Indication: Product used for unknown indication
     Dosage: UNK
     Dates: start: 20230415
  74. NITROFURANTOIN MONO./MACRO. [Concomitant]
     Indication: Product used for unknown indication

REACTIONS (25)
  - Seizure [Unknown]
  - Musculoskeletal discomfort [Unknown]
  - Psoriatic arthropathy [Unknown]
  - Viral infection [Recovering/Resolving]
  - Febrile convulsion [Recovering/Resolving]
  - Dislocation of vertebra [Unknown]
  - Disability [Unknown]
  - Joint dislocation [Unknown]
  - Arthritis [Recovered/Resolved]
  - Pre-existing condition improved [Recovered/Resolved]
  - Emergency care [Unknown]
  - Degenerative bone disease [Unknown]
  - Laryngitis [Unknown]
  - Pain [Unknown]
  - Urinary tract infection [Recovered/Resolved]
  - Hypertension [Unknown]
  - Insomnia [Unknown]
  - Anxiety [Unknown]
  - Panic attack [Unknown]
  - Flatulence [Unknown]
  - Akathisia [Unknown]
  - Drug ineffective [Unknown]
  - Contraindicated product administered [Unknown]
  - Product administration interrupted [Unknown]
  - Product dose omission issue [Unknown]

NARRATIVE: CASE EVENT DATE: 20230301
